FAERS Safety Report 5825211-X (Version None)
Quarter: 2008Q3

REPORT INFORMATION
  Report Type: 
  Country: None (occurrence: None)
  Receive Date: 20080729
  Receipt Date: 20080722
  Transmission Date: 20090109
  Serious: Yes (Death)
  Sender: FDA-Public Use
  Company Number: PHEH2008US01366

PATIENT
  Age: 15 Year
  Sex: Male

DRUGS (7)
  1. RITALIN [Suspect]
     Indication: ATTENTION DEFICIT/HYPERACTIVITY DISORDER
  2. OPANA ER [Suspect]
     Dosage: 20 MG, UNK
  3. ALCOHOL [Suspect]
  4. CITALOPRAM HYDROBROMIDE [Suspect]
  5. NICOTINE [Suspect]
  6. CANNABIS [Suspect]
  7. ANTIDEPRESSANTS [Concomitant]

REACTIONS (4)
  - DRUG LEVEL INCREASED [None]
  - EPISTAXIS [None]
  - INTENTIONAL DRUG MISUSE [None]
  - UNRESPONSIVE TO STIMULI [None]
